FAERS Safety Report 5721621-X (Version None)
Quarter: 2008Q2

REPORT INFORMATION
  Report Type: 
  Country: None (occurrence: None)
  Receive Date: 20080428
  Receipt Date: 20080428
  Transmission Date: 20081010
  Serious: No
  Sender: FDA-Public Use
  Company Number: None

PATIENT
  Sex: Female
  Weight: 56.8 kg

DRUGS (2)
  1. SINGULAIR [Suspect]
     Indication: ASTHMA
     Dosage: 10 MG TABS  ONCE DAILY  PO
     Route: 048
     Dates: start: 20080325, end: 20080414
  2. SINGULAIR [Suspect]
     Indication: MULTIPLE ALLERGIES
     Dosage: 10 MG TABS  ONCE DAILY  PO
     Route: 048
     Dates: start: 20080325, end: 20080414

REACTIONS (5)
  - DEPRESSION [None]
  - SELF-INDUCED VOMITING [None]
  - SOCIAL AVOIDANT BEHAVIOUR [None]
  - SUICIDAL IDEATION [None]
  - WEIGHT DECREASED [None]
